FAERS Safety Report 6475867-6 (Version None)
Quarter: 2009Q4

REPORT INFORMATION
  Report Type: 
  Country: None (occurrence: None)
  Receive Date: 20091204
  Receipt Date: 20091125
  Transmission Date: 20100525
  Serious: Yes (Hospitalization, Other)
  Sender: FDA-Public Use
  Company Number: BR-ABBOTT-09P-020-0610829-00

PATIENT
  Sex: Female
  Weight: 52 kg

DRUGS (4)
  1. HUMIRA [Suspect]
     Indication: RHEUMATOID ARTHRITIS
     Route: 058
     Dates: start: 19970101, end: 20091001
  2. FLUNITRAZEPAM [Concomitant]
     Indication: SLEEP DISORDER THERAPY
     Route: 048
  3. TRAMADOL HCL [Concomitant]
     Indication: PAIN
     Route: 048
  4. DICLOFENAC +  CODEINE [Concomitant]
     Indication: PAIN
     Route: 048

REACTIONS (4)
  - BONE PAIN [None]
  - CATHETER PLACEMENT [None]
  - SPINAL DISORDER [None]
  - WEIGHT DECREASED [None]
